FAERS Safety Report 20749243 (Version 1)
Quarter: 2022Q2

REPORT INFORMATION
  Report Type: Spontaneous
  Country: CA (occurrence: CA)
  Receive Date: 20220426
  Receipt Date: 20220426
  Transmission Date: 20220721
  Serious: Yes (Hospitalization, Other)
  Sender: FDA-Public Use
  Company Number: CA-SA-SAC20220420000425

PATIENT
  Age: 11 Year
  Sex: Male

DRUGS (3)
  1. BISACODYL [Suspect]
     Active Substance: BISACODYL
  2. HYDROXYCHLOROQUINE [Suspect]
     Active Substance: HYDROXYCHLOROQUINE
  3. RANITIDINE [Suspect]
     Active Substance: RANITIDINE

REACTIONS (7)
  - Drug abuse [Unknown]
  - Drug dependence [Unknown]
  - Drug ineffective [Unknown]
  - Off label use [Unknown]
  - Product prescribing error [Unknown]
  - Respiratory depression [Unknown]
  - Product use issue [Unknown]
